FAERS Safety Report 7515769-7 (Version None)
Quarter: 2011Q2

REPORT INFORMATION
  Report Type: 
  Country: None (occurrence: None)
  Receive Date: 20110425
  Receipt Date: 20101020
  Transmission Date: 20111010
  Serious: Yes (Other)
  Sender: FDA-Public Use
  Company Number: MC201000321

PATIENT
  Age: 44 Year
  Sex: Male

DRUGS (8)
  1. BENADRYL [Concomitant]
  2. ISOVUE-300 [Concomitant]
  3. PAPAVERINE (PAPAVERINE SULFATE) [Concomitant]
  4. VERSED [Concomitant]
  5. VALIUM [Concomitant]
  6. ANGIOMAX [Suspect]
     Indication: ARTERECTOMY WITH GRAFT REPLACEMENT
     Dosage: 0.75 MG/KG, (12 ML) BOLUS; 1.75 MG/KG, (28 ML/HR) HR
     Route: 040
     Dates: start: 20101004
  7. ANGIOMAX [Suspect]
     Indication: ARTERECTOMY WITH GRAFT REPLACEMENT
     Dosage: 0.75 MG/KG, (12 ML) BOLUS; 1.75 MG/KG, (28 ML/HR) HR
     Route: 040
     Dates: start: 20101004, end: 20101004
  8. FENTANYL CITRATE [Concomitant]

REACTIONS (2)
  - OFF LABEL USE [None]
  - THROMBOSIS IN DEVICE [None]
